FAERS Safety Report 7879018-2 (Version None)
Quarter: 2011Q4

REPORT INFORMATION
  Report Type: 
  Country: None (occurrence: None)
  Receive Date: 20111101
  Receipt Date: 20111025
  Transmission Date: 20120403
  Serious: Yes (Other)
  Sender: FDA-Public Use
  Company Number: PHEH2006US11438

PATIENT
  Sex: Male
  Weight: 82.54 kg

DRUGS (55)
  1. SINEMET [Concomitant]
  2. FLOMAX [Concomitant]
  3. MAGNESIUM [Concomitant]
  4. AMANTADINE HCL [Concomitant]
  5. MERINAX [Concomitant]
  6. VITAMIN D [Concomitant]
  7. INTERFERON [Concomitant]
  8. ZOFRAN [Concomitant]
  9. DARVOCET-N 50 [Concomitant]
  10. FOLATE SODIUM [Concomitant]
  11. VITAMIN B COMPLEX CAP [Concomitant]
  12. VITAMIN E [Concomitant]
  13. CLONIDINE [Concomitant]
  14. LENALIDOMIDE [Concomitant]
  15. AVENA SATIVA [Concomitant]
  16. AREDIA [Suspect]
     Indication: MULTIPLE MYELOMA
     Dosage: 90 MG, QMO
     Route: 042
     Dates: start: 19950101, end: 20020426
  17. ZOMETA [Suspect]
     Indication: MULTIPLE MYELOMA
     Dosage: 4 MG\5ML, UNK
     Dates: start: 20020628, end: 20051117
  18. FLONASE [Concomitant]
  19. DICLOFENAC POTASSIUM [Concomitant]
  20. REGLAN [Concomitant]
  21. WARFARIN SODIUM [Concomitant]
  22. RAMIPRIL [Concomitant]
  23. VIAGRA [Concomitant]
  24. COGENTIN [Concomitant]
  25. TRAZODONE HYDROCHLORIDE [Concomitant]
  26. CIPROFLOXACIN [Concomitant]
  27. TESTOSTERONE [Concomitant]
  28. COD-LIVER OIL [Concomitant]
  29. PREDNISONE [Concomitant]
  30. HALDOL [Concomitant]
  31. OXYCODONE HCL [Concomitant]
     Route: 048
  32. CELEBREX [Concomitant]
  33. BENICAR [Concomitant]
  34. NASONEX [Concomitant]
  35. LOVENOX [Concomitant]
  36. ASCORBIC ACID [Concomitant]
  37. GEODON [Concomitant]
  38. ZOLOFT [Concomitant]
  39. CHEMOTHERAPEUTICS NOS [Concomitant]
  40. BENZTROPINE MESYLATE [Concomitant]
  41. VINCRISTINE + ADRIAMYCIN + DEXAMETHASONE [Concomitant]
  42. ZYPREXA [Concomitant]
  43. LISINOPRIL [Concomitant]
  44. ZYRTEC [Concomitant]
  45. ALPHA LIPOIC ACID [Concomitant]
  46. SLEEP AID [Concomitant]
  47. MIRAPEX [Concomitant]
     Dosage: 0.5 MG, UNK
     Route: 048
  48. ASPIRIN [Concomitant]
  49. TOPROL-XL [Concomitant]
  50. PEN-VEE K [Concomitant]
  51. CALCIUM [Concomitant]
  52. ZINC [Concomitant]
  53. SHARK CARTILAGE [Concomitant]
  54. KLOR-CON [Concomitant]
  55. DEXAMETHASONE [Concomitant]

REACTIONS (100)
  - GENERAL PHYSICAL HEALTH DETERIORATION [None]
  - JAW DISORDER [None]
  - DEMENTIA WITH LEWY BODIES [None]
  - BRONCHITIS [None]
  - SPINAL OSTEOARTHRITIS [None]
  - HEARING DISABILITY [None]
  - GYNAECOMASTIA [None]
  - ACQUIRED OESOPHAGEAL WEB [None]
  - SWELLING [None]
  - NERVOUSNESS [None]
  - PANCYTOPENIA [None]
  - MITRAL VALVE INCOMPETENCE [None]
  - DEHYDRATION [None]
  - INAPPROPRIATE ANTIDIURETIC HORMONE SECRETION [None]
  - SINUS BRADYCARDIA [None]
  - POOR DENTAL CONDITION [None]
  - TOOTH INFECTION [None]
  - AMNESIA [None]
  - DYSPHAGIA [None]
  - MULTIPLE MYELOMA [None]
  - OSTEOPOROSIS [None]
  - MUSCLE STRAIN [None]
  - DERMATOPHYTOSIS [None]
  - CONSTIPATION [None]
  - INCREASED APPETITE [None]
  - DEEP VEIN THROMBOSIS [None]
  - DEFORMITY [None]
  - WOUND INFECTION [None]
  - TREMOR [None]
  - HALLUCINATION, VISUAL [None]
  - HERNIA [None]
  - TOURETTE'S DISORDER [None]
  - BLEPHARITIS [None]
  - HYPONATRAEMIA [None]
  - VOMITING [None]
  - PULMONARY HYPERTENSION [None]
  - HYPOKALAEMIA [None]
  - OSTEONECROSIS OF JAW [None]
  - WOUND DEHISCENCE [None]
  - LIFE EXPECTANCY SHORTENED [None]
  - INJURY [None]
  - COGNITIVE DISORDER [None]
  - DISTURBANCE IN ATTENTION [None]
  - VISUAL ACUITY REDUCED [None]
  - CHEST PAIN [None]
  - HEADACHE [None]
  - CAROTID ARTERY STENOSIS [None]
  - HYPOVOLAEMIA [None]
  - RIB FRACTURE [None]
  - ASTHENIA [None]
  - BREAST HYPERPLASIA [None]
  - HYPOGONADISM [None]
  - FALL [None]
  - CHOLELITHIASIS [None]
  - OLFACTORY NERVE DISORDER [None]
  - CATARACT [None]
  - ATELECTASIS [None]
  - BACK PAIN [None]
  - SPINAL COLUMN STENOSIS [None]
  - ORTHOSTATIC HYPOTENSION [None]
  - ERECTILE DYSFUNCTION [None]
  - RENAL FAILURE [None]
  - EXPOSED BONE IN JAW [None]
  - LOOSE TOOTH [None]
  - HYPOPHAGIA [None]
  - INFECTION [None]
  - PARKINSON'S DISEASE [None]
  - OSTEOSCLEROSIS [None]
  - MUSCULOSKELETAL STIFFNESS [None]
  - DRY EYE [None]
  - IRRITABILITY [None]
  - NODULE [None]
  - HYPOMAGNESAEMIA [None]
  - PRESYNCOPE [None]
  - ASTHMA [None]
  - ANXIETY [None]
  - PNEUMONIA [None]
  - BONE DENSITY DECREASED [None]
  - HYPOACUSIS [None]
  - LACUNAR INFARCTION [None]
  - CARDIAC FAILURE CONGESTIVE [None]
  - DIARRHOEA [None]
  - TEMPORAL ARTERITIS [None]
  - AUTONOMIC NEUROPATHY [None]
  - CARDIOMYOPATHY [None]
  - ARTERIOSCLEROSIS [None]
  - PAIN [None]
  - EMOTIONAL DISTRESS [None]
  - DECREASED INTEREST [None]
  - FATIGUE [None]
  - SOMNOLENCE [None]
  - BONE PAIN [None]
  - URTICARIA [None]
  - VERTIGO [None]
  - GASTRITIS [None]
  - GASTROOESOPHAGEAL REFLUX DISEASE [None]
  - HYPERHIDROSIS [None]
  - SPINAL COMPRESSION FRACTURE [None]
  - DIZZINESS [None]
  - ANAEMIA [None]
